FAERS Safety Report 13754057 (Version 1)
Quarter: 2017Q3

REPORT INFORMATION
  Report Type: Spontaneous
  Country: US (occurrence: US)
  Receive Date: 20170714
  Receipt Date: 20170714
  Transmission Date: 20171127
  Serious: Yes (Life-Threatening)
  Sender: FDA-Public Use
  Company Number: None

PATIENT
  Age: 83 Year
  Sex: Female
  Weight: 89 kg

DRUGS (1)
  1. GADOBENATE DIMEGLUINE [Suspect]
     Active Substance: GADOBENATE DIMEGLUMINE
     Indication: NUCLEAR MAGNETIC RESONANCE IMAGING BRAIN
     Dosage: ?          OTHER DOSE:ML;OTHER FREQUENCY:ONCE;?
     Route: 042
     Dates: start: 20170511, end: 20170511

REACTIONS (9)
  - Cyanosis [None]
  - Respiratory acidosis [None]
  - Contrast media reaction [None]
  - Anaphylactic reaction [None]
  - Wheezing [None]
  - Sinus tachycardia [None]
  - Hypoxia [None]
  - Unresponsive to stimuli [None]
  - Respiratory distress [None]

NARRATIVE: CASE EVENT DATE: 20170511
